FAERS Safety Report 7137380-2 (Version None)
Quarter: 2010Q4

REPORT INFORMATION
  Report Type: 
  Country: None (occurrence: None)
  Receive Date: 20101206
  Receipt Date: 20101125
  Transmission Date: 20110411
  Serious: Yes (Other)
  Sender: FDA-Public Use
  Company Number: PHHY2009TW60890

PATIENT
  Sex: Female

DRUGS (2)
  1. GLIVEC [Suspect]
     Indication: GASTROINTESTINAL STROMAL TUMOUR
     Dosage: 200 MG UNK
     Route: 048
     Dates: start: 20090305
  2. GLIVEC [Suspect]
     Dosage: 400 MG, UNK
     Route: 048

REACTIONS (7)
  - ABDOMINAL PAIN [None]
  - DIARRHOEA [None]
  - DIZZINESS [None]
  - EYE DISCHARGE [None]
  - HAEMORRHAGE SUBCUTANEOUS [None]
  - LACRIMATION INCREASED [None]
  - PLEURAL EFFUSION [None]
